FAERS Safety Report 13688087 (Version 1)
Quarter: 2017Q2

REPORT INFORMATION
  Report Type: Spontaneous
  Country: PL (occurrence: PL)
  Receive Date: 20170626
  Receipt Date: 20170626
  Transmission Date: 20170830
  Serious: Yes (Life-Threatening)
  Sender: FDA-Public Use
  Company Number: PL-ROCHE-1950928

PATIENT
  Age: 66 Year
  Sex: Female
  Weight: 103.5 kg

DRUGS (7)
  1. PARACETAMOL [Concomitant]
     Active Substance: ACETAMINOPHEN
     Route: 042
     Dates: start: 20170607, end: 20170607
  2. PHENAZINE [Concomitant]
     Active Substance: PERPHENAZINE
     Route: 030
     Dates: start: 20170607, end: 20170607
  3. DEXAMETHASONE. [Concomitant]
     Active Substance: DEXAMETHASONE
     Route: 042
     Dates: start: 20170607, end: 20170607
  4. GLUCOPHAGE [Concomitant]
     Active Substance: METFORMIN HYDROCHLORIDE
     Indication: DIABETES MELLITUS
     Dosage: 1*1
     Route: 048
     Dates: start: 20170606
  5. GLICLADA [Concomitant]
     Active Substance: GLICLAZIDE
     Indication: DIABETES MELLITUS
     Dosage: 1*1
     Route: 048
     Dates: start: 20170606
  6. MILURIT [Concomitant]
     Active Substance: ALLOPURINOL
     Dosage: 1*1
     Route: 048
     Dates: start: 20170606
  7. GAZYVARO [Suspect]
     Active Substance: OBINUTUZUMAB
     Indication: CHRONIC LYMPHOCYTIC LEUKAEMIA
     Dosage: 25 MG/H
     Route: 042
     Dates: start: 20170607, end: 20170607

REACTIONS (6)
  - Tachycardia [Unknown]
  - Blood pressure increased [Recovered/Resolved]
  - Cold sweat [Not Recovered/Not Resolved]
  - Dyspnoea [Not Recovered/Not Resolved]
  - Heart rate increased [Recovered/Resolved]
  - Erythema [Not Recovered/Not Resolved]

NARRATIVE: CASE EVENT DATE: 20170607
